FAERS Safety Report 4554505-3 (Version None)
Quarter: 2005Q1

REPORT INFORMATION
  Report Type: 
  Country: None (occurrence: None)
  Receive Date: 20050118
  Receipt Date: 20050105
  Transmission Date: 20050727
  Serious: Yes (Death)
  Sender: FDA-Public Use
  Company Number: JP-JNJFOC-20050101613

PATIENT
  Age: 30 Year
  Sex: Male

DRUGS (6)
  1. RISPERDAL [Suspect]
     Indication: SCHIZOPHRENIA
  2. SULTOPRIDE HYDROCHLORIDE [Concomitant]
     Indication: SCHIZOPHRENIA
  3. CARBAMAZEPINE [Concomitant]
     Indication: EPILEPSY
  4. BROMAZEPAM [Concomitant]
     Indication: SCHIZOPHRENIA
  5. PHENYTOIN [Concomitant]
     Indication: EPILEPSY
  6. NITRAZEPAM [Concomitant]
     Indication: SCHIZOPHRENIA

REACTIONS (2)
  - DEATH [None]
  - EPILEPSY [None]
